FAERS Safety Report 8436107-1 (Version None)
Quarter: 2012Q2

REPORT INFORMATION
  Report Type: 
  Country: None (occurrence: None)
  Receive Date: 20120614
  Receipt Date: 20120613
  Transmission Date: 20120825
  Serious: Yes (Hospitalization)
  Sender: FDA-Public Use
  Company Number: PHHY2012IN050674

PATIENT
  Sex: Male

DRUGS (1)
  1. SEBIVO [Suspect]
     Indication: HEPATITIS
     Dosage: 600 MG, UNK
     Route: 048
     Dates: start: 20120325

REACTIONS (1)
  - CEREBRAL HAEMORRHAGE [None]
